FAERS Safety Report 9853919 (Version 2)
Quarter: 2014Q1

REPORT INFORMATION
  Report Type: Spontaneous
  Country: DK (occurrence: FR)
  Receive Date: 20140129
  Receipt Date: 20140227
  Transmission Date: 20141002
  Serious: Yes (Hospitalization)
  Sender: FDA-Public Use
  Company Number: FR-FRI-1000053219

PATIENT
  Age: 50 Year
  Sex: Female

DRUGS (3)
  1. ESCITALOPRAM [Suspect]
     Indication: MOOD DISORDER DUE TO A GENERAL MEDICAL CONDITION
     Dosage: 1 DF
     Route: 048
     Dates: start: 20131126
  2. ABILIFY [Interacting]
     Indication: MOOD DISORDER DUE TO A GENERAL MEDICAL CONDITION
     Dosage: 1 DF
     Route: 048
     Dates: start: 20131210, end: 20131213
  3. VALIUM [Concomitant]
     Dosage: 1 DF
     Dates: start: 20131118

REACTIONS (3)
  - Dysarthria [Recovered/Resolved]
  - Speech disorder [Recovered/Resolved]
  - Drug interaction [Recovered/Resolved]
